FAERS Safety Report 7578004-X (Version None)
Quarter: 2011Q2

REPORT INFORMATION
  Report Type: 
  Country: None (occurrence: None)
  Receive Date: 20110628
  Receipt Date: 20110613
  Transmission Date: 20111010
  Serious: Yes (Hospitalization)
  Sender: FDA-Public Use
  Company Number: GB-WATSON-2011-08661

PATIENT
  Age: 83 Year
  Sex: Female

DRUGS (10)
  1. ACETAMINOPHEN AND CODEINE PHOSPHATE [Suspect]
     Indication: PRODUCT USED FOR UNKNOWN INDICATION
     Route: 048
  2. DEXTROMORAMIDE [Suspect]
     Indication: PRODUCT USED FOR UNKNOWN INDICATION
     Dosage: 5 MG, UNK
     Route: 065
  3. TRAMADOL HCL [Suspect]
     Indication: BREAST CANCER METASTATIC
     Dosage: 50 MG, DAILY
     Route: 065
  4. FENTANYL [Suspect]
     Indication: PRODUCT USED FOR UNKNOWN INDICATION
     Dosage: 200 MCG, UNK
     Route: 002
  5. CORTICOSTEROID NOS [Concomitant]
     Indication: PRODUCT USED FOR UNKNOWN INDICATION
     Route: 065
  6. CELECOXIB [Concomitant]
     Indication: PRODUCT USED FOR UNKNOWN INDICATION
     Route: 065
  7. MORPHINE [Suspect]
     Indication: PRODUCT USED FOR UNKNOWN INDICATION
     Dosage: 5 MG, UNK
     Route: 065
  8. OXYCODONE HCL [Suspect]
     Indication: PRODUCT USED FOR UNKNOWN INDICATION
     Dosage: 2.5 MG
     Route: 065
  9. PAMIDRONATE DISODIUM [Concomitant]
     Indication: PRODUCT USED FOR UNKNOWN INDICATION
     Dosage: ONCE EVERY 4 WEEKS
     Route: 042
  10. METHADONE HCL [Suspect]
     Indication: COUGH
     Route: 065

REACTIONS (1)
  - TYPE I HYPERSENSITIVITY [None]
